FAERS Safety Report 24603241 (Version 3)
Quarter: 2024Q4

REPORT INFORMATION
  Report Type: Other
  Country: US (occurrence: US)
  Receive Date: 20241111
  Receipt Date: 20241217
  Transmission Date: 20250115
  Serious: No
  Sender: TRAVERE THERAPEUTICS
  Company Number: US-TRAVERE-2024TVT01109

PATIENT
  Age: 60 Year
  Sex: Female

DRUGS (3)
  1. FILSPARI [Suspect]
     Active Substance: SPARSENTAN
     Indication: IgA nephropathy
     Dosage: TAKE 1 TABLET BY MOUTH 1 TIME A DAY FOR DAYS 1-14
     Route: 048
     Dates: start: 202410
  2. FILSPARI [Suspect]
     Active Substance: SPARSENTAN
     Dosage: 2 TABLETS BY MOUTH 1 TIME A DAY ON DAYS 15-30
     Route: 048
     Dates: start: 20241023
  3. FILSPARI [Suspect]
     Active Substance: SPARSENTAN
     Route: 048
     Dates: start: 20241107, end: 20241114

REACTIONS (5)
  - Chromaturia [Unknown]
  - Dizziness [None]
  - Rash [Unknown]
  - Asthenia [Unknown]
  - Hot flush [Unknown]

NARRATIVE: CASE EVENT DATE: 20241001
